FAERS Safety Report 19456089 (Version 1)
Quarter: 2021Q2

REPORT INFORMATION
  Report Type: Spontaneous
  Country: US (occurrence: US)
  Receive Date: 20210624
  Receipt Date: 20210624
  Transmission Date: 20210717
  Serious: Yes (Hospitalization)
  Sender: FDA-Public Use
  Company Number: None

PATIENT
  Age: 77 Year
  Sex: Male
  Weight: 70.8 kg

DRUGS (1)
  1. PEMBROLIZUMAB 200 MG [Suspect]
     Active Substance: PEMBROLIZUMAB
     Indication: SQUAMOUS CELL CARCINOMA OF THE ORAL CAVITY
     Dosage: ?          OTHER DOSE:PEMBROLIZUMAB;OTHER ROUTE:IV?
     Route: 042
     Dates: start: 20201029

REACTIONS (6)
  - Dysphagia [None]
  - Tachycardia [None]
  - Dehydration [None]
  - Hypotension [None]
  - Hypophagia [None]
  - Atrial fibrillation [None]

NARRATIVE: CASE EVENT DATE: 20210621
